FAERS Safety Report 23501658 (Version 1)
Quarter: 2024Q1

REPORT INFORMATION
  Report Type: Spontaneous
  Country: US (occurrence: US)
  Receive Date: 20240208
  Receipt Date: 20240208
  Transmission Date: 20240410
  Serious: Yes (Other)
  Sender: FDA-Public Use
  Company Number: US-JNJFOC-20240209770

PATIENT
  Sex: Male

DRUGS (3)
  1. TYLENOL EXTRA STRENGTH [Suspect]
     Active Substance: ACETAMINOPHEN
     Indication: Arthralgia
     Route: 065
  2. QUVIVIQ [Concomitant]
     Active Substance: DARIDOREXANT
     Indication: Product used for unknown indication
     Route: 065
  3. MEMANTINE HYDROCHLORIDE [Concomitant]
     Active Substance: MEMANTINE HYDROCHLORIDE
     Indication: Product used for unknown indication
     Route: 065

REACTIONS (7)
  - Inappropriate schedule of product administration [Recovering/Resolving]
  - Urinary retention [Recovering/Resolving]
  - Heart rate abnormal [Recovering/Resolving]
  - Dyspnoea [Recovering/Resolving]
  - Muscle atrophy [Recovering/Resolving]
  - Insomnia [Recovering/Resolving]
  - Erythema [Recovering/Resolving]
